FAERS Safety Report 8477134-8 (Version None)
Quarter: 2012Q2

REPORT INFORMATION
  Report Type: 
  Country: None (occurrence: None)
  Receive Date: 20120629
  Receipt Date: 20120615
  Transmission Date: 20120825
  Serious: Yes (Death, Other)
  Sender: FDA-Public Use
  Company Number: US-RANBAXY-2012US-57315

PATIENT
  Sex: Female

DRUGS (7)
  1. OMNICEF [Concomitant]
     Indication: PYREXIA
  2. MUSINEX-D [Concomitant]
     Indication: COUGH
     Dosage: UNKNOWN
     Route: 065
  3. ALBUTEROL [Concomitant]
     Indication: COUGH
     Dosage: UNK
     Route: 065
  4. MUSINEX-D [Concomitant]
     Indication: PYREXIA
  5. ZITHROMAX [Concomitant]
     Indication: BRONCHITIS
     Dosage: 2 DF/DAY
     Route: 065
  6. MINOCYCLINE HYDROCHLORIDE [Suspect]
     Indication: ACNE
     Dosage: UNK
     Route: 065
  7. OMNICEF [Concomitant]
     Indication: COUGH
     Dosage: UNKNOWN
     Route: 065

REACTIONS (1)
  - AUTOIMMUNE HEPATITIS [None]
